FAERS Safety Report 26179501 (Version 1)
Quarter: 2025Q4

REPORT INFORMATION
  Report Type: Report from Study
  Country: US (occurrence: US)
  Receive Date: 20251219
  Receipt Date: 20251219
  Transmission Date: 20260117
  Serious: Yes (Death, Other)
  Sender: GILEAD
  Company Number: US-GILEAD-2025-0741621

PATIENT
  Age: 45 Year
  Sex: Female

DRUGS (1)
  1. AZTREONAM LYSINE [Suspect]
     Active Substance: AZTREONAM LYSINE
     Indication: Pneumonia pseudomonal
     Dosage: 75MG 3 TIMES A DAY
     Route: 065
     Dates: start: 202401

REACTIONS (2)
  - Death [Fatal]
  - Product use in unapproved indication [Unknown]
